FAERS Safety Report 15436531 (Version 1)
Quarter: 2018Q4

REPORT INFORMATION
  Report Type: Report from Study
  Country: IT (occurrence: IT)
  Receive Date: 20180927
  Receipt Date: 20180927
  Transmission Date: 20190204
  Serious: Yes (Other)
  Sender: FDA-Public Use
  Company Number: IT-PFIZER INC-2018385511

PATIENT
  Age: 23 Year
  Sex: Female

DRUGS (1)
  1. TAVOR (LORAZEPAM) [Suspect]
     Active Substance: LORAZEPAM
     Indication: ANXIETY
     Dosage: 0.5 DF, TOTAL (1/2 VIAL OF TAVOR)
     Route: 030
     Dates: start: 20180705, end: 20180705

REACTIONS (5)
  - Hypokinesia [Recovering/Resolving]
  - Sopor [Recovering/Resolving]
  - Sedation [Recovering/Resolving]
  - Hypotension [Recovering/Resolving]
  - Bradyphrenia [Recovering/Resolving]

NARRATIVE: CASE EVENT DATE: 20180705
